FAERS Safety Report 19293528 (Version 1)
Quarter: 2021Q2

REPORT INFORMATION
  Report Type: Spontaneous
  Country: US (occurrence: US)
  Receive Date: 20210524
  Receipt Date: 20210524
  Transmission Date: 20210717
  Serious: No
  Sender: FDA-Public Use
  Company Number: US-TEVA-2021-US-1911415

PATIENT
  Sex: Female

DRUGS (1)
  1. PERMETHRIN TEVA [Suspect]
     Active Substance: PERMETHRIN
     Route: 065

REACTIONS (2)
  - Feeling abnormal [Unknown]
  - Burning sensation [Unknown]
